FAERS Safety Report 8438870-2 (Version None)
Quarter: 2012Q2

REPORT INFORMATION
  Report Type: 
  Country: None (occurrence: None)
  Receive Date: 20120606
  Receipt Date: 20120524
  Transmission Date: 20120825
  Serious: Yes (Death, Hospitalization, Other)
  Sender: FDA-Public Use
  Company Number: WAES 1112USA01248

PATIENT
  Age: 32 Year
  Sex: Female

DRUGS (4)
  1. SULFAMETHOXAZOLE AND TRIMETHOPRIM [Suspect]
     Indication: PRODUCT USED FOR UNKNOWN INDICATION
     Dates: start: 20060630, end: 20120413
  2. ISENTRESS [Suspect]
     Indication: HIV INFECTION
     Dosage: PO
     Route: 048
     Dates: start: 20101207, end: 20120407
  3. IBUPROFEN [Suspect]
     Indication: PRODUCT USED FOR UNKNOWN INDICATION
     Dates: start: 20111014
  4. LOPINAVIR AND RITONAVIR [Suspect]
     Indication: PRODUCT USED FOR UNKNOWN INDICATION
     Dosage: PO
     Route: 048
     Dates: start: 20111207, end: 20120407

REACTIONS (18)
  - GASTROENTERITIS [None]
  - ABDOMINAL PAIN [None]
  - BLOOD PRESSURE DECREASED [None]
  - MATERNAL EXPOSURE DURING PREGNANCY [None]
  - PREMATURE DELIVERY [None]
  - VOMITING [None]
  - APHAGIA [None]
  - LIP NEOPLASM MALIGNANT STAGE UNSPECIFIED [None]
  - DIZZINESS [None]
  - ASTHENIA [None]
  - UPPER RESPIRATORY TRACT INFECTION [None]
  - PREGNANCY [None]
  - ANAEMIA [None]
  - PREMATURE LABOUR [None]
  - HERPES ZOSTER [None]
  - XERODERMA PIGMENTOSUM [None]
  - ANAEMIA OF PREGNANCY [None]
  - CACHEXIA [None]
